FAERS Safety Report 23849250 (Version 1)
Quarter: 2024Q2

REPORT INFORMATION
  Report Type: Other
  Country: PL (occurrence: PL)
  Receive Date: 20240513
  Receipt Date: 20240513
  Transmission Date: 20240715
  Serious: Yes (Life-Threatening, Hospitalization)
  Sender: FDA-Public Use
  Company Number: PL-B.Braun Medical Inc.-2156910

PATIENT
  Age: 1 Day
  Sex: Male
  Weight: 3.6 kg

DRUGS (5)
  1. MEROPENEM [Suspect]
     Active Substance: MEROPENEM
     Indication: Antibiotic therapy
  2. AMPICILLIN [Suspect]
     Active Substance: AMPICILLIN
  3. FLUCONAZOLE [Suspect]
     Active Substance: FLUCONAZOLE
  4. VANCOMYCIN [Suspect]
     Active Substance: VANCOMYCIN
  5. GENTAMICIN [Suspect]
     Active Substance: GENTAMICIN

REACTIONS (3)
  - Necrotising colitis [Recovered/Resolved with Sequelae]
  - Product administered to patient of inappropriate age [Recovered/Resolved with Sequelae]
  - Off label use [Recovered/Resolved with Sequelae]
